FAERS Safety Report 8475645-2 (Version None)
Quarter: 2012Q2

REPORT INFORMATION
  Report Type: 
  Country: None (occurrence: None)
  Receive Date: 20120628
  Receipt Date: 20120618
  Transmission Date: 20120825
  Serious: Yes (Other)
  Sender: FDA-Public Use
  Company Number: JP-ASTRAZENECA-2012SE42328

PATIENT

DRUGS (4)
  1. CIBENOL [Concomitant]
     Route: 065
  2. NORVASC [Concomitant]
     Route: 048
  3. CANDESARTAN CILEXETIL [Suspect]
     Route: 048
  4. VERAPAMIL HCL [Concomitant]
     Route: 065

REACTIONS (1)
  - ORGANISING PNEUMONIA [None]
